FAERS Safety Report 13638376 (Version 3)
Quarter: 2017Q2

REPORT INFORMATION
  Report Type: Spontaneous
  Country: SE (occurrence: SE)
  Receive Date: 20170609
  Receipt Date: 20170623
  Transmission Date: 20170830
  Serious: Yes (Life-Threatening, Hospitalization, Other)
  Sender: FDA-Public Use
  Company Number: SE-BAYER-2017-103024

PATIENT
  Age: 72 Year
  Sex: Male

DRUGS (2)
  1. XOFIGO [Suspect]
     Active Substance: RADIUM RA-223 DICHLORIDE
     Indication: PROSTATE CANCER STAGE IV
     Dosage: 1100 KBQ/ML (4.3 MBQ)
     Route: 042
     Dates: start: 20170201, end: 20170201
  2. XOFIGO [Suspect]
     Active Substance: RADIUM RA-223 DICHLORIDE
     Indication: METASTASES TO BONE
     Dosage: 1100 KBQ/ML (4.3 MBQ)
     Route: 042
     Dates: start: 20170426, end: 20170426

REACTIONS (10)
  - Aspartate aminotransferase increased [Not Recovered/Not Resolved]
  - Prostatic specific antigen increased [None]
  - Liver disorder [None]
  - Metastases to liver [None]
  - Hepatomegaly [None]
  - Alanine aminotransferase increased [Not Recovered/Not Resolved]
  - Nausea [None]
  - Hepatic failure [Not Recovered/Not Resolved]
  - Blood bilirubin increased [Not Recovered/Not Resolved]
  - Jaundice [None]

NARRATIVE: CASE EVENT DATE: 20170504
